FAERS Safety Report 11752830 (Version 3)
Quarter: 2016Q3

REPORT INFORMATION
  Report Type: Spontaneous
  Country: FR (occurrence: FR)
  Receive Date: 20151119
  Receipt Date: 20160728
  Transmission Date: 20161109
  Serious: Yes (Hospitalization)
  Sender: FDA-Public Use
  Company Number: FR-ROCHE-1662370

PATIENT
  Age: 58 Year
  Sex: Male

DRUGS (13)
  1. ROVALCYTE [Suspect]
     Active Substance: VALGANCICLOVIR HYDROCHLORIDE
     Dosage: 450 1/DAY
     Route: 048
  2. CELLCEPT [Suspect]
     Active Substance: MYCOPHENOLATE MOFETIL\MYCOPHENOLATE MOFETIL HYDROCHLORIDE
     Indication: LIVER TRANSPLANT
     Route: 048
     Dates: start: 201501, end: 20151022
  3. KARDEGIC [Concomitant]
     Active Substance: ASPIRIN LYSINE
     Route: 065
  4. AVLOCARDYL [Concomitant]
     Active Substance: PROPRANOLOL HYDROCHLORIDE
     Route: 065
  5. ACTONEL [Suspect]
     Active Substance: RISEDRONATE SODIUM
     Indication: LIVER TRANSPLANT
     Route: 048
     Dates: end: 20151022
  6. ROVALCYTE [Suspect]
     Active Substance: VALGANCICLOVIR HYDROCHLORIDE
     Indication: CYTOMEGALOVIRUS INFECTION
     Route: 048
     Dates: start: 201509
  7. OFLOCET [Suspect]
     Active Substance: OFLOXACIN
     Indication: LIVER TRANSPLANT
     Route: 048
     Dates: start: 20150930, end: 20151022
  8. PREDNISOLONE. [Concomitant]
     Active Substance: PREDNISOLONE
     Route: 065
  9. ZYVOXID [Suspect]
     Active Substance: LINEZOLID
     Indication: LIVER TRANSPLANT
     Route: 048
     Dates: start: 20150930, end: 20151022
  10. EUPANTOL [Suspect]
     Active Substance: PANTOPRAZOLE SODIUM
     Indication: LIVER TRANSPLANT
     Route: 048
     Dates: end: 20151022
  11. ACTONEL [Suspect]
     Active Substance: RISEDRONATE SODIUM
     Route: 048
  12. LOVENOX [Concomitant]
     Active Substance: ENOXAPARIN SODIUM
     Route: 065
  13. TACROLIMUS. [Concomitant]
     Active Substance: TACROLIMUS
     Route: 065

REACTIONS (4)
  - Anaemia [Recovering/Resolving]
  - Thrombocytopenia [Recovering/Resolving]
  - Agranulocytosis [Recovered/Resolved]
  - Neutropenia [Recovering/Resolving]

NARRATIVE: CASE EVENT DATE: 20151022
